FAERS Safety Report 14455096 (Version 5)
Quarter: 2018Q2

REPORT INFORMATION
  Report Type: Report from Study
  Country: US (occurrence: US)
  Receive Date: 20180129
  Receipt Date: 20180413
  Transmission Date: 20180711
  Serious: Yes (Hospitalization)
  Sender: FDA-Public Use
  Company Number: US-ACTELION-A-NJ2016-142390

PATIENT
  Age: 53 Year
  Sex: Female
  Weight: 62.13 kg

DRUGS (11)
  1. OPSUMIT [Suspect]
     Active Substance: MACITENTAN
     Dosage: 10 MG, QD
     Route: 048
     Dates: start: 20160520
  2. ORENITRAM [Suspect]
     Active Substance: TREPROSTINIL
     Indication: PRODUCT USED FOR UNKNOWN INDICATION
     Dosage: 0.25 MG, TID
     Route: 065
  3. ADEMPAS [Concomitant]
     Active Substance: RIOCIGUAT
  4. ADCIRCA [Suspect]
     Active Substance: TADALAFIL
     Indication: PRODUCT USED FOR UNKNOWN INDICATION
     Route: 065
  5. OPSUMIT [Suspect]
     Active Substance: MACITENTAN
     Dosage: UNK
     Route: 048
  6. LASIX [Suspect]
     Active Substance: FUROSEMIDE
     Dosage: 40 MG, UNK
     Route: 065
  7. LASIX [Suspect]
     Active Substance: FUROSEMIDE
     Indication: PRODUCT USED FOR UNKNOWN INDICATION
     Dosage: 20 MG, UNK
     Route: 065
  8. TYVASO [Concomitant]
     Active Substance: TREPROSTINIL
     Dosage: UNK
     Dates: end: 20161226
  9. ACETYLSALICYLIC ACID [Concomitant]
     Active Substance: ASPIRIN
     Dosage: 325 MG, QD
  10. OPSUMIT [Suspect]
     Active Substance: MACITENTAN
     Indication: PULMONARY ARTERIAL HYPERTENSION
     Dosage: 10 MG, QD
     Route: 048
     Dates: start: 20160520
  11. REMODULIN [Concomitant]
     Active Substance: TREPROSTINIL

REACTIONS (45)
  - Sinus tachycardia [Unknown]
  - Weight increased [Unknown]
  - Joint swelling [Unknown]
  - Gait disturbance [Unknown]
  - Oedema peripheral [Unknown]
  - Haematemesis [Recovered/Resolved]
  - Chronic obstructive pulmonary disease [Unknown]
  - Internal haemorrhage [Unknown]
  - Swelling face [Unknown]
  - Abdominal distension [Unknown]
  - Hypoaesthesia [Unknown]
  - Fatigue [Unknown]
  - Arthralgia [Unknown]
  - Feeling abnormal [Unknown]
  - Catheter site pain [Unknown]
  - Infusion site induration [Unknown]
  - Chills [Unknown]
  - Dyspnoea exertional [Unknown]
  - Synovial cyst [Unknown]
  - Muscle tightness [Unknown]
  - Upper respiratory tract congestion [Unknown]
  - Respiratory distress [Not Recovered/Not Resolved]
  - Flushing [Unknown]
  - Drug dose omission [Unknown]
  - Pain in extremity [Unknown]
  - Disease progression [Unknown]
  - Device infusion issue [Unknown]
  - Diarrhoea haemorrhagic [Unknown]
  - Device dislocation [Unknown]
  - Dyspnoea [Not Recovered/Not Resolved]
  - Constipation [Unknown]
  - Blood gases abnormal [Unknown]
  - Therapy non-responder [Unknown]
  - Dizziness [Unknown]
  - Bronchitis [Unknown]
  - Infusion site rash [Unknown]
  - Pulmonary arterial hypertension [Unknown]
  - Vomiting [Unknown]
  - Eye swelling [Unknown]
  - Rash [Unknown]
  - Pain in jaw [Unknown]
  - Diarrhoea [Unknown]
  - Myalgia [Unknown]
  - Hypotension [Unknown]
  - Condition aggravated [Unknown]

NARRATIVE: CASE EVENT DATE: 20171205
